FAERS Safety Report 18495254 (Version 1)
Quarter: 2020Q4

REPORT INFORMATION
  Report Type: Spontaneous
  Country: IT (occurrence: IT)
  Receive Date: 20201112
  Receipt Date: 20201112
  Transmission Date: 20210114
  Serious: Yes (Other)
  Sender: FDA-Public Use
  Company Number: IT-AMGEN-ITASP2020180354

PATIENT
  Sex: Male

DRUGS (5)
  1. PANITUMUMAB [Suspect]
     Active Substance: PANITUMUMAB
     Indication: RECTAL CANCER
     Dosage: UNK
     Route: 065
  2. IRINOTECAN [Concomitant]
     Active Substance: IRINOTECAN
     Indication: RECTAL CANCER
     Dosage: UNK
  3. OXALIPLATIN. [Concomitant]
     Active Substance: OXALIPLATIN
     Indication: RECTAL CANCER
     Dosage: UNK
     Route: 065
  4. FOLINIC ACID [Concomitant]
     Active Substance: LEUCOVORIN
     Indication: RECTAL CANCER
     Dosage: UNK
  5. FLUOROURACIL. [Concomitant]
     Active Substance: FLUOROURACIL
     Indication: RECTAL CANCER
     Dosage: UNK

REACTIONS (20)
  - Hyperkalaemia [Unknown]
  - Nausea [Unknown]
  - Proctitis [Unknown]
  - Pollakiuria [Unknown]
  - Haemoglobin abnormal [Unknown]
  - Aspartate aminotransferase increased [Unknown]
  - Neuralgia [Unknown]
  - Rectal cancer recurrent [Unknown]
  - Exfoliative rash [Unknown]
  - Dysgeusia [Unknown]
  - Diarrhoea [Unknown]
  - Neutropenia [Unknown]
  - Rectal haemorrhage [Unknown]
  - Pyrexia [Unknown]
  - Constipation [Unknown]
  - Fatigue [Unknown]
  - Alanine aminotransferase increased [Unknown]
  - Dysuria [Unknown]
  - Stomatitis [Unknown]
  - Radiation skin injury [Unknown]
